FAERS Safety Report 10168363 (Version 2)
Quarter: 2020Q3

REPORT INFORMATION
  Report Type: Report from Study
  Country: US (occurrence: US)
  Receive Date: 20140513
  Receipt Date: 20140607
  Transmission Date: 20201105
  Serious: Yes (Death, Hospitalization, Other)
  Sender: FDA-Public Use
  Company Number: PHHY2014US054578

PATIENT
  Age: 84 Year
  Sex: Male

DRUGS (31)
  1. LEUCOVORIN. [Suspect]
     Active Substance: LEUCOVORIN
     Indication: GASTROOESOPHAGEAL CANCER
     Route: 042
     Dates: start: 20140224
  2. MUGARD                             /07647601/ [Concomitant]
     Indication: STOMATITIS
     Dosage: 5 ML, UNK
     Route: 048
     Dates: start: 20140407
  3. IMODIUM [Concomitant]
     Active Substance: LOPERAMIDE HYDROCHLORIDE
     Indication: DIARRHOEA
     Dosage: 2 DF, UNK
     Route: 048
     Dates: start: 20140303
  4. DECADRON [Concomitant]
     Active Substance: DEXAMETHASONE
     Dosage: 10 MG, UNK
     Route: 042
     Dates: start: 20140421, end: 20140421
  5. LEUCOVORIN. [Suspect]
     Active Substance: LEUCOVORIN
     Dosage: 704 MG, QW2
     Route: 042
     Dates: start: 20140331
  6. SODIUM CHLORIDE. [Concomitant]
     Active Substance: SODIUM CHLORIDE
     Dosage: 1000 ML, UNK
     Route: 042
     Dates: start: 20140325, end: 20140325
  7. SODIUM CHLORIDE. [Concomitant]
     Active Substance: SODIUM CHLORIDE
     Dosage: 1000 ML, UNK
     Route: 042
     Dates: start: 20140402, end: 20140402
  8. SODIUM CHLORIDE. [Concomitant]
     Active Substance: SODIUM CHLORIDE
     Dosage: 1000 ML, UNK
     Route: 042
     Dates: start: 20140416, end: 20140416
  9. IBUPROFEN. [Concomitant]
     Active Substance: IBUPROFEN
     Indication: NECK PAIN
     Dosage: 400 MG, UNK
     Route: 048
     Dates: start: 20140324, end: 20140327
  10. NEUPOGEN [Concomitant]
     Active Substance: FILGRASTIM
     Indication: NEUTROPENIA
     Dosage: 480 UG, UNK
     Route: 058
     Dates: start: 20140421, end: 20140421
  11. DECADRON [Concomitant]
     Active Substance: DEXAMETHASONE
     Dosage: 10 MG, UNK
     Route: 042
     Dates: start: 20140416, end: 20140418
  12. 5?FLUOROURACIL [Suspect]
     Active Substance: FLUOROURACIL
     Route: 041
     Dates: start: 20140310
  13. ONARTUZUMAB. [Suspect]
     Active Substance: ONARTUZUMAB
     Indication: GASTROOESOPHAGEAL CANCER
     Route: 042
     Dates: start: 20140224
  14. SODIUM CHLORIDE. [Concomitant]
     Active Substance: SODIUM CHLORIDE
     Dosage: 2000 ML, UNK
     Route: 042
     Dates: start: 20140414, end: 20140414
  15. OXALIPLATIN. [Suspect]
     Active Substance: OXALIPLATIN
     Indication: GASTROOESOPHAGEAL CANCER
     Route: 042
     Dates: start: 20140224
  16. 5?FLUOROURACIL [Suspect]
     Active Substance: FLUOROURACIL
     Route: 040
     Dates: start: 20140310
  17. TAMSULOSIN [Concomitant]
     Active Substance: TAMSULOSIN
     Indication: BENIGN PROSTATIC HYPERPLASIA
     Route: 048
  18. SODIUM CHLORIDE. [Concomitant]
     Active Substance: SODIUM CHLORIDE
     Dosage: 1000 ML, UNK
     Route: 042
     Dates: start: 20140407, end: 20140407
  19. 5?FLUOROURACIL [Suspect]
     Active Substance: FLUOROURACIL
     Dosage: 704 MG, QW2
     Route: 040
     Dates: start: 20140331
  20. 5?FLUOROURACIL [Suspect]
     Active Substance: FLUOROURACIL
     Dosage: 4224 MG, QW2
     Route: 041
     Dates: start: 20140331
  21. VITAMIN B12 [Concomitant]
     Active Substance: CYANOCOBALAMIN
     Indication: VITAMIN B12 DEFICIENCY
     Dosage: 1000 UG, UNK
     Route: 030
     Dates: start: 20120604
  22. DECADRON [Concomitant]
     Active Substance: DEXAMETHASONE
     Indication: PROPHYLAXIS OF NAUSEA AND VOMITING
     Dosage: 10 MG, UNK
     Route: 042
     Dates: start: 20140324, end: 20140325
  23. PNEUMOCOCCAL VACCINE POLYVALENT NOS [Concomitant]
     Active Substance: PNEUMOCOCCAL VACCINE POLYVALENT
     Dosage: 05 ML, UNK
     Dates: start: 20140421, end: 20140421
  24. OXALIPLATIN. [Suspect]
     Active Substance: OXALIPLATIN
     Dosage: 150 MG, QW2
     Route: 042
     Dates: start: 20140331
  25. ONARTUZUMAB. [Suspect]
     Active Substance: ONARTUZUMAB
     Route: 042
     Dates: start: 20140331
  26. NEUTRASAL                          /06572101/ [Concomitant]
     Indication: DRY MOUTH
     Dosage: 538 MG, UNK
     Route: 048
     Dates: start: 20130614
  27. ZOFRAN [Concomitant]
     Active Substance: ONDANSETRON HYDROCHLORIDE
     Indication: NAUSEA
     Dosage: 8 MG, PRN
     Route: 048
     Dates: start: 20140224
  28. IMODIUM [Concomitant]
     Active Substance: LOPERAMIDE HYDROCHLORIDE
     Dosage: 2 MG, UNK
     Route: 048
     Dates: start: 20140402, end: 20140402
  29. SODIUM CHLORIDE. [Concomitant]
     Active Substance: SODIUM CHLORIDE
     Indication: DEHYDRATION
     Dosage: 1000 ML, UNK
     Route: 042
     Dates: start: 20140324, end: 20140324
  30. 5?FLUOROURACIL [Suspect]
     Active Substance: FLUOROURACIL
     Indication: GASTROOESOPHAGEAL CANCER
     Route: 040
     Dates: start: 20140224
  31. 5?FLUOROURACIL [Suspect]
     Active Substance: FLUOROURACIL
     Route: 041
     Dates: start: 20140224

REACTIONS (5)
  - Failure to thrive [Fatal]
  - Asthenia [Recovering/Resolving]
  - Dyspnoea [Recovering/Resolving]
  - Dehydration [Recovered/Resolved with Sequelae]
  - Malignant neoplasm progression [Fatal]

NARRATIVE: CASE EVENT DATE: 20140421
